FAERS Safety Report 22291149 (Version 4)
Quarter: 2023Q2

REPORT INFORMATION
  Report Type: Spontaneous
  Country: US (occurrence: US)
  Receive Date: 20230506
  Receipt Date: 20230617
  Transmission Date: 20230722
  Serious: Yes (Other)
  Sender: FDA-Public Use
  Company Number: US-002147023-NVSC2023US101679

PATIENT
  Sex: Male

DRUGS (1)
  1. TRILEPTAL [Suspect]
     Active Substance: OXCARBAZEPINE
     Indication: Product used for unknown indication
     Dosage: 300 ML
     Route: 048

REACTIONS (2)
  - Seizure [Unknown]
  - Product supply issue [Unknown]
